FAERS Safety Report 12750921 (Version 1)
Quarter: 2016Q3

REPORT INFORMATION
  Report Type: Spontaneous
  Country: FR (occurrence: FR)
  Receive Date: 20160916
  Receipt Date: 20160916
  Transmission Date: 20161109
  Serious: Yes (Other)
  Sender: FDA-Public Use
  Company Number: FR-GE HEALTHCARE MEDICAL DIAGNOSTICS-VISP-PR-1609S-0530

PATIENT
  Age: 42 Year
  Sex: Female

DRUGS (7)
  1. VISIPAQUE [Suspect]
     Active Substance: IODIXANOL
     Indication: THERAPEUTIC PROCEDURE
  2. LIPIODOL ULTRA-FLUIDE [Suspect]
     Active Substance: ETHIODIZED OIL
     Indication: VARICOSE VEIN
  3. LIPIODOL ULTRA-FLUIDE [Suspect]
     Active Substance: ETHIODIZED OIL
     Indication: THERAPEUTIC PROCEDURE
  4. VISIPAQUE [Suspect]
     Active Substance: IODIXANOL
     Indication: VARICOSE VEIN
     Route: 042
     Dates: start: 20150102, end: 20150102
  5. VISIPAQUE [Suspect]
     Active Substance: IODIXANOL
     Indication: DIAGNOSTIC PROCEDURE
  6. LIPIODOL ULTRA-FLUIDE [Suspect]
     Active Substance: ETHIODIZED OIL
     Indication: VARICOSE VEIN
     Route: 042
     Dates: start: 20150102, end: 20150102
  7. VISIPAQUE [Suspect]
     Active Substance: IODIXANOL
     Indication: VARICOSE VEIN
     Route: 042
     Dates: start: 20141114, end: 20141114

REACTIONS (1)
  - Hyperthyroidism [Recovering/Resolving]

NARRATIVE: CASE EVENT DATE: 201512
